FAERS Safety Report 20253840 (Version 1)
Quarter: 2021Q4

REPORT INFORMATION
  Report Type: Spontaneous
  Country: US (occurrence: US)
  Receive Date: 20211230
  Receipt Date: 20211230
  Transmission Date: 20220303
  Serious: No
  Sender: FDA-Public Use
  Company Number: US-JNJFOC-20211223319

PATIENT
  Age: 32 Year
  Sex: Female
  Weight: 88.530 kg

DRUGS (1)
  1. XARELTO [Suspect]
     Active Substance: RIVAROXABAN
     Indication: Thrombosis
     Dosage: SERIAL NUMBER-194358317178
     Route: 048
     Dates: start: 20211205

REACTIONS (5)
  - Stress [Recovered/Resolved]
  - Insomnia [Recovered/Resolved]
  - Menstruation irregular [Unknown]
  - Dizziness [Unknown]
  - Feeling cold [Recovered/Resolved]

NARRATIVE: CASE EVENT DATE: 20211208
